FAERS Safety Report 5378846-5 (Version None)
Quarter: 2007Q3

REPORT INFORMATION
  Report Type: 
  Country: None (occurrence: None)
  Receive Date: 20070705
  Receipt Date: 20070627
  Transmission Date: 20080115
  Serious: Yes (Hospitalization)
  Sender: FDA-Public Use
  Company Number: DE-ELI_LILLY_AND_COMPANY-DE200706006451

PATIENT
  Age: 78 Year
  Sex: Female

DRUGS (1)
  1. FORTEO [Suspect]
     Indication: OSTEOPOROSIS
     Dosage: UNK, DAILY (1/D)
     Route: 058
     Dates: start: 20070622, end: 20070627

REACTIONS (2)
  - BODY TEMPERATURE INCREASED [None]
  - CHILLS [None]
